FAERS Safety Report 6779499-1 (Version None)
Quarter: 2010Q2

REPORT INFORMATION
  Report Type: 
  Country: None (occurrence: None)
  Receive Date: 20100618
  Receipt Date: 20100609
  Transmission Date: 20101027
  Serious: Yes (Other)
  Sender: FDA-Public Use
  Company Number: US-PFIZER INC-2010073069

PATIENT
  Sex: Female
  Weight: 66.667 kg

DRUGS (2)
  1. XANAX [Suspect]
     Indication: ANXIETY
     Dosage: UNK
     Route: 048
     Dates: start: 20090801, end: 20091001
  2. ETHINYL ESTRADIOL AND NORETHINDRONE [Concomitant]
     Indication: CONTRACEPTION
     Dosage: UNK

REACTIONS (3)
  - COELIAC DISEASE [None]
  - ENDODONTIC PROCEDURE [None]
  - PERIODONTAL OPERATION [None]
